FAERS Safety Report 19427140 (Version 13)
Quarter: 2023Q1

REPORT INFORMATION
  Report Type: Report from Study
  Country: NZ (occurrence: None)
  Receive Date: 20210617
  Receipt Date: 20230303
  Transmission Date: 20230418
  Serious: Yes (Hospitalization)
  Sender: FDA-Public Use
  Company Number: NZ-ROCHE-2846450

PATIENT
  Age: 57 Year
  Sex: Female
  Weight: 115.5 kg

DRUGS (67)
  1. ATEZOLIZUMAB [Suspect]
     Active Substance: ATEZOLIZUMAB
     Indication: Non-small cell lung cancer
     Dosage: ON 01/JUN/2021, SHE RECEIVED LAST DOSE PRIOR TO EVENT
     Route: 041
     Dates: start: 20210601
  2. TIRAGOLUMAB [Suspect]
     Active Substance: TIRAGOLUMAB
     Indication: Non-small cell lung cancer
     Dosage: ON 01/JUN/2021, SHE RECEIVED LAST DOSE OF TIRAGOLUMAB PRIOR TO ADVERSE EVENT
     Route: 042
     Dates: start: 20210601
  3. ATEZOLIZUMAB [Suspect]
     Active Substance: ATEZOLIZUMAB
     Indication: Non-small cell lung cancer
     Dosage: ON 01/JUN/2021, SHE RECEIVED LAST DOSE PRIOR TO EVENT
     Route: 041
     Dates: start: 20210601
  4. CARBOPLATIN [Suspect]
     Active Substance: CARBOPLATIN
     Indication: Non-small cell lung cancer
     Dosage: AUC 5?START DATE OF MOST RECENT DOSE 750 MG OF STUDY DRUG PRIOR TO SAE: 01/JUN/2021
     Route: 042
     Dates: start: 20210601
  5. PEMETREXED [Suspect]
     Active Substance: PEMETREXED
     Indication: Non-small cell lung cancer
     Dosage: START DATE OF MOST RECENT DOSE 1100 MG OF STUDY DRUG PRIOR TO SAE: 01/JUN/2021
     Route: 042
     Dates: start: 20210601
  6. BISOPROLOL [Concomitant]
     Active Substance: BISOPROLOL
     Indication: Constipation
     Route: 048
     Dates: start: 20210309, end: 20210826
  7. PANTOPRAZOLE [Concomitant]
     Active Substance: PANTOPRAZOLE
     Route: 048
     Dates: start: 202102, end: 20210606
  8. CLONAZEPAM [Concomitant]
     Active Substance: CLONAZEPAM
     Indication: Anxiety
     Route: 048
     Dates: start: 20210422
  9. FOLIC ACID [Concomitant]
     Active Substance: FOLIC ACID
     Indication: Prophylaxis of nausea and vomiting
     Dates: start: 20210601
  10. FOLIC ACID [Concomitant]
     Active Substance: FOLIC ACID
     Indication: Rash
     Route: 048
     Dates: start: 20210528, end: 20210827
  11. ACETAMINOPHEN [Concomitant]
     Active Substance: ACETAMINOPHEN
     Indication: Musculoskeletal chest pain
     Route: 048
  12. ACETAMINOPHEN [Concomitant]
     Active Substance: ACETAMINOPHEN
     Indication: Headache
     Route: 048
     Dates: start: 20210322
  13. ONDANSETRON [Concomitant]
     Active Substance: ONDANSETRON
     Indication: Nausea
     Route: 048
     Dates: start: 20210601, end: 20210610
  14. ONDANSETRON [Concomitant]
     Active Substance: ONDANSETRON
     Route: 042
     Dates: start: 20210826, end: 20210826
  15. DOMPERIDONE [Concomitant]
     Active Substance: DOMPERIDONE
     Indication: Nausea
     Dates: start: 20210601
  16. DOMPERIDONE [Concomitant]
     Active Substance: DOMPERIDONE
     Route: 048
     Dates: start: 20210528
  17. LORAZEPAM [Concomitant]
     Active Substance: LORAZEPAM
     Indication: Anxiety
     Route: 048
     Dates: start: 2006
  18. LORAZEPAM [Concomitant]
     Active Substance: LORAZEPAM
     Route: 048
     Dates: start: 2006
  19. LORAZEPAM [Concomitant]
     Active Substance: LORAZEPAM
     Route: 048
     Dates: start: 2006
  20. POLYETHYLENE GLYCOLS [Concomitant]
     Active Substance: POLYETHYLENE GLYCOLS
     Indication: Constipation
     Route: 048
     Dates: start: 20210408
  21. OXYCODONE HYDROCHLORIDE [Concomitant]
     Active Substance: OXYCODONE HYDROCHLORIDE
     Indication: Antitussive therapy
     Route: 048
     Dates: start: 20210506, end: 20210611
  22. RIZATRIPTAN [Concomitant]
     Active Substance: RIZATRIPTAN
     Indication: Pain
     Dosage: ONGOING NO
     Route: 048
     Dates: start: 20210218, end: 20210823
  23. DOCUSATE SODIUM\SENNOSIDES A AND B [Concomitant]
     Active Substance: DOCUSATE SODIUM\SENNOSIDES A AND B
     Indication: Constipation
     Route: 048
     Dates: start: 20210424
  24. GLYCERIN [Concomitant]
     Active Substance: GLYCERIN
     Indication: Constipation
     Route: 054
     Dates: start: 2021
  25. GLYCERIN [Concomitant]
     Active Substance: GLYCERIN
     Dosage: 2 ?ONGOING NO
     Route: 054
     Dates: start: 20210719, end: 202108
  26. PANTOPRAZOLE [Concomitant]
     Active Substance: PANTOPRAZOLE
     Indication: Abdominal pain upper
     Route: 048
     Dates: start: 202102
  27. PANTOPRAZOLE [Concomitant]
     Active Substance: PANTOPRAZOLE
     Indication: Gastrooesophageal reflux disease
     Route: 048
     Dates: start: 20210607, end: 20210629
  28. PANTOPRAZOLE [Concomitant]
     Active Substance: PANTOPRAZOLE
     Indication: Ulcer
     Route: 048
     Dates: start: 20210630, end: 20210705
  29. PANTOPRAZOLE [Concomitant]
     Active Substance: PANTOPRAZOLE
     Route: 048
     Dates: start: 20210706
  30. TRAMADOL [Concomitant]
     Active Substance: TRAMADOL
     Indication: Musculoskeletal chest pain
     Route: 048
     Dates: start: 20210226, end: 20210827
  31. TRAMADOL [Concomitant]
     Active Substance: TRAMADOL
     Indication: Pain
     Route: 042
     Dates: start: 20210827, end: 20210827
  32. BISOPROLOL FUMARATE [Concomitant]
     Active Substance: BISOPROLOL FUMARATE
     Indication: Constipation
     Route: 048
     Dates: start: 20210309, end: 20210826
  33. BUDESONIDE\FORMOTEROL FUMARATE DIHYDRATE [Concomitant]
     Active Substance: BUDESONIDE\FORMOTEROL FUMARATE DIHYDRATE
     Indication: Wheezing
     Route: 055
     Dates: start: 202102
  34. BUDESONIDE\FORMOTEROL FUMARATE DIHYDRATE [Concomitant]
     Active Substance: BUDESONIDE\FORMOTEROL FUMARATE DIHYDRATE
     Indication: Cough
  35. VENTOLIN [Concomitant]
     Active Substance: ALBUTEROL SULFATE
     Indication: Wheezing
     Dosage: 2 SPRAY
     Route: 055
     Dates: start: 202102
  36. VENTOLIN [Concomitant]
     Active Substance: ALBUTEROL SULFATE
     Indication: Cough
  37. DEXAMETHASONE [Concomitant]
     Active Substance: DEXAMETHASONE
     Indication: Prophylaxis of nausea and vomiting
     Route: 048
     Dates: start: 20210531, end: 20210825
  38. POTASSIUM CHLORIDE [Concomitant]
     Active Substance: POTASSIUM CHLORIDE
     Indication: Hypokalaemia
     Dosage: 20?GIVEN FOR PROPHYLAXIS YES
     Route: 042
     Dates: start: 20210607, end: 20210607
  39. POTASSIUM CHLORIDE [Concomitant]
     Active Substance: POTASSIUM CHLORIDE
     Dosage: 20 OTHER
     Route: 042
     Dates: start: 20210607, end: 20210608
  40. FLEET ENEMA [Concomitant]
     Active Substance: SODIUM PHOSPHATE, DIBASIC\SODIUM PHOSPHATE, MONOBASIC
     Indication: Constipation
     Dosage: 1
     Route: 054
     Dates: start: 20210623, end: 20210623
  41. FLEET ENEMA [Concomitant]
     Active Substance: SODIUM PHOSPHATE, DIBASIC\SODIUM PHOSPHATE, MONOBASIC
     Dosage: 1 ?ONGOING NO
     Route: 054
     Dates: start: 20210624, end: 202108
  42. FLEET ENEMA [Concomitant]
     Active Substance: SODIUM PHOSPHATE, DIBASIC\SODIUM PHOSPHATE, MONOBASIC
     Dosage: 1 OTHER
     Route: 054
     Dates: start: 20210721
  43. OLANZAPINE [Concomitant]
     Active Substance: OLANZAPINE
     Indication: Anxiety
     Route: 048
     Dates: start: 20210622, end: 20210627
  44. OLANZAPINE [Concomitant]
     Active Substance: OLANZAPINE
     Route: 048
     Dates: start: 20210719, end: 20210721
  45. METOCLOPRAMIDE [Concomitant]
     Active Substance: METOCLOPRAMIDE
     Indication: Nausea
     Dosage: ONGOING NO
     Route: 042
     Dates: start: 20210622, end: 202108
  46. CYCLIZINE [Concomitant]
     Active Substance: CYCLIZINE
     Indication: Nausea
     Route: 042
     Dates: start: 20210705, end: 20210718
  47. CYCLIZINE [Concomitant]
     Active Substance: CYCLIZINE
     Route: 042
     Dates: start: 20210722, end: 20210724
  48. SCOPOLAMINE [Concomitant]
     Active Substance: SCOPOLAMINE
     Indication: Nausea
     Route: 061
     Dates: start: 20210708, end: 20210715
  49. LEVOMEPROMAZINE [Concomitant]
     Active Substance: LEVOMEPROMAZINE
     Indication: Anxiety
     Route: 048
     Dates: start: 20210719
  50. LACTULOSE [Concomitant]
     Active Substance: LACTULOSE
     Indication: Constipation
     Route: 048
     Dates: start: 20210719, end: 20210721
  51. PICOPREP [Concomitant]
     Active Substance: ANHYDROUS CITRIC ACID\MAGNESIUM OXIDE\SODIUM PICOSULFATE
     Dosage: 1
     Route: 048
     Dates: start: 20210626, end: 20210626
  52. FENTANYL [Concomitant]
     Active Substance: FENTANYL
     Indication: Analgesic therapy
     Route: 030
     Dates: start: 20210826, end: 20210826
  53. FENTANYL [Concomitant]
     Active Substance: FENTANYL
     Route: 042
     Dates: start: 20210826, end: 20210826
  54. CEFUROXIME [Concomitant]
     Active Substance: CEFUROXIME
     Indication: Infection
     Route: 042
     Dates: start: 20210826, end: 20210826
  55. PIPERACILLIN SODIUM\TAZOBACTAM SODIUM [Concomitant]
     Active Substance: PIPERACILLIN SODIUM\TAZOBACTAM SODIUM
     Indication: Infection
     Route: 040
     Dates: start: 20210826, end: 20210901
  56. MORPHINE [Concomitant]
     Active Substance: MORPHINE
     Indication: Pain
     Route: 048
     Dates: start: 20210827, end: 20210827
  57. MORPHINE [Concomitant]
     Active Substance: MORPHINE
     Indication: Pain
     Route: 058
     Dates: start: 20210827, end: 20210827
  58. MORPHINE [Concomitant]
     Active Substance: MORPHINE
     Route: 042
     Dates: start: 20210827, end: 20210830
  59. MORPHINE [Concomitant]
     Active Substance: MORPHINE
     Route: 058
     Dates: start: 20210827, end: 20210901
  60. MORPHINE [Concomitant]
     Active Substance: MORPHINE
     Route: 058
     Dates: start: 20210830, end: 20210830
  61. MORPHINE [Concomitant]
     Active Substance: MORPHINE
     Route: 058
     Dates: start: 20210831
  62. MIDAZOLAM [Concomitant]
     Active Substance: MIDAZOLAM
     Indication: Anxiety
     Route: 058
     Dates: start: 20210827, end: 20210829
  63. MIDAZOLAM [Concomitant]
     Active Substance: MIDAZOLAM
     Route: 058
     Dates: start: 20210828, end: 20210830
  64. MIDAZOLAM [Concomitant]
     Active Substance: MIDAZOLAM
     Route: 058
     Dates: start: 20210830, end: 20210831
  65. MIDAZOLAM [Concomitant]
     Active Substance: MIDAZOLAM
     Route: 058
     Dates: start: 20210831
  66. DEXTROSE;NORMAL SALINE;POTASSIUM CHLORIDE [Concomitant]
     Route: 042
     Dates: start: 20210828, end: 20210829
  67. METHOXYFLURANE [Concomitant]
     Active Substance: METHOXYFLURANE
     Indication: Pain
     Route: 048
     Dates: start: 20210826, end: 20210826

REACTIONS (1)
  - Oesophagitis [Recovering/Resolving]

NARRATIVE: CASE EVENT DATE: 20210606
